FAERS Safety Report 7413853-X (Version None)
Quarter: 2011Q2

REPORT INFORMATION
  Report Type: 
  Country: None (occurrence: None)
  Receive Date: 20110413
  Receipt Date: 20110331
  Transmission Date: 20111010
  Serious: Yes (Other)
  Sender: FDA-Public Use
  Company Number: DE-MYLANLABS-2011S1006715

PATIENT
  Age: 13 Year
  Sex: Female
  Weight: 57 kg

DRUGS (1)
  1. TRAMADOL [Suspect]
     Indication: DRUG ABUSE
     Route: 048

REACTIONS (3)
  - OVERDOSE [None]
  - DRUG ABUSE [None]
  - FATIGUE [None]
